FAERS Safety Report 4484600-9 (Version None)
Quarter: 2004Q4

REPORT INFORMATION
  Report Type: 
  Country: None (occurrence: None)
  Receive Date: 20041022
  Receipt Date: 20041006
  Transmission Date: 20050328
  Serious: Yes (Death)
  Sender: FDA-Public Use
  Company Number: 2004AL000886

PATIENT
  Age: 63 Year

DRUGS (4)
  1. ALPRAZOLAM TABLETS, USP, 0.25 MG, 0.5MG, 1MG, AND 2MG (PUREPAC) [Suspect]
     Dosage: PO
     Route: 048
  2. ACETAMINOPHEN [Suspect]
     Dosage: PO
  3. ACETAMINOPHEN [Suspect]
     Dosage: PO
     Route: 048
  4. ZOLPIDEM TARTRATE [Suspect]
     Dosage: PO
     Route: 048

REACTIONS (2)
  - COMPLETED SUICIDE [None]
  - MULTIPLE DRUG OVERDOSE [None]
